FAERS Safety Report 6582930-8 (Version None)
Quarter: 2010Q1

REPORT INFORMATION
  Report Type: 
  Country: None (occurrence: None)
  Receive Date: 20100216
  Receipt Date: 20100201
  Transmission Date: 20100710
  Serious: Yes (Death)
  Sender: FDA-Public Use
  Company Number: FR-GENENTECH-297806

PATIENT

DRUGS (4)
  1. RITUXIMAB [Suspect]
     Indication: RENAL TRANSPLANT
     Dosage: 375 MG/M2, UNK
     Route: 065
  2. METHYLPREDNISOLONE [Suspect]
     Indication: RENAL TRANSPLANT
     Dosage: 1 MG/KG, UNK
     Route: 042
  3. DEXCHLORPHENIRAMINE [Suspect]
     Indication: RENAL TRANSPLANT
     Dosage: 5 MG, UNK
     Route: 042
  4. ANTI-THYMOCYTE GLOBULIN NOS [Suspect]
     Indication: RENAL TRANSPLANT
     Dosage: UNK
     Route: 065

REACTIONS (27)
  - ACUTE RESPIRATORY DISTRESS SYNDROME [None]
  - ALTERNARIA INFECTION [None]
  - ASPERGILLOSIS [None]
  - BRONCHOPULMONARY ASPERGILLOSIS [None]
  - CANDIDA SEPSIS [None]
  - CELLULITIS [None]
  - CHOLECYSTITIS [None]
  - CRYPTOCOCCOSIS [None]
  - CYTOMEGALOVIRUS INFECTION [None]
  - ENDOCARDITIS [None]
  - ESCHERICHIA SEPSIS [None]
  - FASCIITIS [None]
  - HEPATITIS B [None]
  - HERPES SEPSIS [None]
  - HERPES SIMPLEX [None]
  - MENINGITIS CRYPTOCOCCAL [None]
  - MENINGITIS HERPES [None]
  - MUCORMYCOSIS [None]
  - PERITONITIS [None]
  - PNEUMOCYSTIS JIROVECI PNEUMONIA [None]
  - PNEUMONIA [None]
  - POLYOMAVIRUS-ASSOCIATED NEPHROPATHY [None]
  - PYELONEPHRITIS ACUTE [None]
  - SEPTIC SHOCK [None]
  - SINUSITIS [None]
  - SINUSITIS ASPERGILLUS [None]
  - TUBERCULOSIS [None]
